FAERS Safety Report 25187617 (Version 1)
Quarter: 2025Q2

REPORT INFORMATION
  Report Type: Report from Study
  Country: US (occurrence: US)
  Receive Date: 20250411
  Receipt Date: 20250411
  Transmission Date: 20250717
  Serious: Yes (Hospitalization, Other)
  Sender: ABBVIE
  Company Number: US-ABBVIE-6215578

PATIENT
  Age: 81 Year
  Sex: Male

DRUGS (1)
  1. IMBRUVICA [Suspect]
     Active Substance: IBRUTINIB
     Indication: Waldenstrom^s macroglobulinaemia
     Route: 048
     Dates: start: 20221109

REACTIONS (4)
  - Hyponatraemia [Recovering/Resolving]
  - Stomatitis [Unknown]
  - Metastases to central nervous system [Not Recovered/Not Resolved]
  - Tooth extraction [Unknown]

NARRATIVE: CASE EVENT DATE: 20240301
